FAERS Safety Report 11302299 (Version 4)
Quarter: 2015Q3

REPORT INFORMATION
  Report Type: Report from Study
  Country: GT (occurrence: GT)
  Receive Date: 20150723
  Receipt Date: 20150928
  Transmission Date: 20151125
  Serious: Yes (Hospitalization, Other)
  Sender: FDA-Public Use
  Company Number: PHHY2015GT086394

PATIENT
  Age: 35 Year
  Sex: Female

DRUGS (4)
  1. VITAMIN D3 [Concomitant]
     Active Substance: CHOLECALCIFEROL
     Indication: PRODUCT USED FOR UNKNOWN INDICATION
     Route: 065
  2. BENZOPHENONE [Concomitant]
     Active Substance: BENZOPHENONE
     Indication: PRODUCT USED FOR UNKNOWN INDICATION
     Route: 065
  3. GILENYA [Suspect]
     Active Substance: FINGOLIMOD HYDROCHLORIDE
     Indication: RELAPSING-REMITTING MULTIPLE SCLEROSIS
     Dosage: 0.5 MG, QD
     Route: 048
     Dates: start: 20150314
  4. INTERFERON BETA NOS [Concomitant]
     Active Substance: INTERFERON BETA
     Indication: PRODUCT USED FOR UNKNOWN INDICATION
     Route: 065

REACTIONS (17)
  - Glomerulonephritis [Recovering/Resolving]
  - Rash [Unknown]
  - Mean platelet volume decreased [Recovering/Resolving]
  - Lymphocyte count decreased [Recovering/Resolving]
  - Renal failure [Unknown]
  - Urine output decreased [Unknown]
  - IgA nephropathy [Recovering/Resolving]
  - Haematuria [Recovering/Resolving]
  - Proteinuria [Recovering/Resolving]
  - Anaemia [Recovering/Resolving]
  - Condition aggravated [Unknown]
  - Systemic lupus erythematosus [Recovering/Resolving]
  - Lupus nephritis [Recovering/Resolving]
  - Blood pressure decreased [Recovering/Resolving]
  - Neutrophil count increased [Recovering/Resolving]
  - Neutrophil percentage increased [Recovering/Resolving]
  - Monocyte percentage increased [Recovering/Resolving]

NARRATIVE: CASE EVENT DATE: 201506
